FAERS Safety Report 19500606 (Version 1)
Quarter: 2021Q3

REPORT INFORMATION
  Report Type: Spontaneous
  Country: DE (occurrence: DE)
  Receive Date: 20210707
  Receipt Date: 20210707
  Transmission Date: 20211014
  Serious: Yes (Hospitalization)
  Sender: FDA-Public Use
  Company Number: DE-TEVA-2021-DE-1929609

PATIENT
  Age: 83 Year
  Sex: Female

DRUGS (13)
  1. ZOLPIDEM [Concomitant]
     Active Substance: ZOLPIDEM TARTRATE
     Dosage: 10 MG, IF NECESSARY
     Route: 048
  2. NYSTATIN/ZINKOXID [Concomitant]
     Dosage: IF NECESSARY
     Route: 003
  3. BENSERAZIDE/LEVODOPA [Suspect]
     Active Substance: BENSERAZIDE\LEVODOPA
     Dosage: 3 DOSAGE FORMS DAILY; 100|25 MG, 1?1?1?0, MEDICATION ERRORS
     Route: 048
  4. MELPERON [Suspect]
     Active Substance: MELPERONE
     Dosage: 25 MILLIGRAM DAILY; 0?0?1?0, MEDICATION ERRORS
     Route: 048
  5. SIMVASTATIN. [Concomitant]
     Active Substance: SIMVASTATIN
     Dosage: 10 MILLIGRAM DAILY; 0?0?1?0
     Route: 048
  6. PROPIVERIN [Concomitant]
     Active Substance: PROPIVERINE
     Dosage: 30 MILLIGRAM DAILY;  1?0?1?0
     Route: 048
  7. LEVOTHYROXINE SODIUM. [Concomitant]
     Active Substance: LEVOTHYROXINE SODIUM
     Dosage: 75 MICROGRAM DAILY;  1?0?0?0
     Route: 048
  8. CLARITHROMYCIN. [Suspect]
     Active Substance: CLARITHROMYCIN
     Dosage: 250 MG, TABLETS IN THE MORNING AND EVENING THROUGH APRIL 7TH , MEDICATION ERRORS
     Route: 048
  9. MIRTAZAPIN [Suspect]
     Active Substance: MIRTAZAPINE
     Dosage: 30 MILLIGRAM DAILY;  0?0?1?0, MEDICATION ERRORS
     Route: 048
  10. CITALOPRAM [Suspect]
     Active Substance: CITALOPRAM HYDROBROMIDE
     Dosage: 30 MILLIGRAM DAILY;  1?0?0?0, MEDICATION ERRORS
     Route: 048
  11. PARACETAMOL [Concomitant]
     Active Substance: ACETAMINOPHEN
     Dosage: 500 MG, 4 TIMES A DAY UNTIL APRIL 7TH
     Route: 048
  12. FUROSEMID [Concomitant]
     Active Substance: FUROSEMIDE
     Dosage: IF NECESSARY
     Route: 048
  13. LITHIUM CARBONAT [Suspect]
     Active Substance: LITHIUM CARBONATE
     Dosage: 0.5?0?1?0, MEDICATION ERRORS
     Route: 048

REACTIONS (4)
  - Fall [Unknown]
  - Asthenia [Unknown]
  - Dizziness [Unknown]
  - Medication error [Unknown]
